FAERS Safety Report 18158714 (Version 1)
Quarter: 2020Q3

REPORT INFORMATION
  Report Type: Spontaneous
  Country: US (occurrence: US)
  Receive Date: 20200817
  Receipt Date: 20200817
  Transmission Date: 20201103
  Serious: No
  Sender: FDA-Public Use
  Company Number: US-PFIZER INC-2020314135

PATIENT
  Age: 79 Year
  Sex: Male

DRUGS (1)
  1. VYNDAQEL [Suspect]
     Active Substance: TAFAMIDIS MEGLUMINE
     Indication: AMYLOIDOSIS
     Dosage: 80 MG
     Dates: start: 201908

REACTIONS (8)
  - N-terminal prohormone brain natriuretic peptide increased [Unknown]
  - Hypervolaemia [Unknown]
  - Peripheral swelling [Unknown]
  - Product use in unapproved indication [Unknown]
  - Abdominal distension [Recovering/Resolving]
  - Weight decreased [Unknown]
  - Off label use [Unknown]
  - Liver function test increased [Unknown]
